FAERS Safety Report 25342809 (Version 1)
Quarter: 2025Q2

REPORT INFORMATION
  Report Type: Spontaneous
  Country: US (occurrence: US)
  Receive Date: 20250521
  Receipt Date: 20250521
  Transmission Date: 20250717
  Serious: No
  Sender: FOUNDATION CONSUMER HEALTHCARE
  Company Number: US-FOUNDATIONCONSUMERHC-2024-US-044628

PATIENT
  Sex: Female

DRUGS (2)
  1. PLAN B ONE-STEP [Suspect]
     Active Substance: LEVONORGESTREL
     Indication: Post coital contraception
     Route: 048
     Dates: start: 20240715, end: 20240723
  2. UNSPECIFIED INGREDIENT [Suspect]
     Active Substance: UNSPECIFIED INGREDIENT
     Dates: start: 20240726, end: 20240803

REACTIONS (4)
  - Vaginal haemorrhage [Recovered/Resolved]
  - Abdominal pain [Not Recovered/Not Resolved]
  - Headache [Unknown]
  - Mood swings [Unknown]

NARRATIVE: CASE EVENT DATE: 20240721
